FAERS Safety Report 6485099-3 (Version None)
Quarter: 2009Q4

REPORT INFORMATION
  Report Type: 
  Country: None (occurrence: None)
  Receive Date: 20091203
  Receipt Date: 20091125
  Transmission Date: 20100525
  Serious: No
  Sender: FDA-Public Use
  Company Number: 20097748

PATIENT
  Age: 56 Year
  Sex: Male

DRUGS (2)
  1. LIORESAL [Suspect]
     Indication: MUSCLE SPASTICITY
     Dosage: 25-50 MCG, DAILY, INTRATHECAL
     Route: 037
  2. MORPHINE [Concomitant]

REACTIONS (6)
  - DRUG EFFECT DECREASED [None]
  - FIBROSIS [None]
  - GRANULOMA [None]
  - MEDICAL DEVICE COMPLICATION [None]
  - MENINGIOMA [None]
  - NEURALGIA [None]
